FAERS Safety Report 6919970-2 (Version None)
Quarter: 2010Q3

REPORT INFORMATION
  Report Type: 
  Country: None (occurrence: None)
  Receive Date: 20100811
  Receipt Date: 20100804
  Transmission Date: 20110219
  Serious: Yes (Hospitalization)
  Sender: FDA-Public Use
  Company Number: IT-BAXTER-2010BH017823

PATIENT
  Age: 64 Year
  Sex: Female

DRUGS (6)
  1. UROMITEXAN BAXTER [Suspect]
     Indication: OVARIAN CANCER
     Route: 042
     Dates: start: 20100520, end: 20100613
  2. HOLOXAN BAXTER [Suspect]
     Indication: OVARIAN CANCER
     Route: 042
     Dates: start: 20100520, end: 20100613
  3. ONDANSETRON [Concomitant]
     Indication: PRODUCT USED FOR UNKNOWN INDICATION
     Route: 042
  4. DEXAMETHASONE [Concomitant]
     Indication: PRODUCT USED FOR UNKNOWN INDICATION
     Route: 042
  5. POTASSIUM CHLORIDE [Concomitant]
     Indication: PRODUCT USED FOR UNKNOWN INDICATION
     Route: 042
  6. MAGNESIUM SULFATE [Concomitant]
     Indication: PRODUCT USED FOR UNKNOWN INDICATION
     Route: 042

REACTIONS (1)
  - FEBRILE NEUTROPENIA [None]
